FAERS Safety Report 14055584 (Version 2)
Quarter: 2017Q4

REPORT INFORMATION
  Report Type: Report from Study
  Country: US (occurrence: US)
  Receive Date: 20171006
  Receipt Date: 20171203
  Transmission Date: 20180321
  Serious: Yes (Death, Hospitalization)
  Sender: FDA-Public Use
  Company Number: US-ASTRAZENECA-2017SF00142

PATIENT
  Age: 724 Month
  Sex: Male

DRUGS (2)
  1. BRILINTA [Suspect]
     Active Substance: TICAGRELOR
     Indication: CHEST PAIN
     Dosage: TWO TIMES A DAY
     Route: 048
     Dates: start: 201702
  2. BRILINTA [Suspect]
     Active Substance: TICAGRELOR
     Indication: STENT PLACEMENT
     Dosage: TWO TIMES A DAY
     Route: 048
     Dates: start: 201702

REACTIONS (5)
  - Death [Fatal]
  - Haemoptysis [Unknown]
  - Haematemesis [Unknown]
  - Blood urine present [Unknown]
  - Haematochezia [Unknown]

NARRATIVE: CASE EVENT DATE: 201703
